FAERS Safety Report 19476611 (Version 1)
Quarter: 2021Q2

REPORT INFORMATION
  Report Type: Report from Study
  Country: KR (occurrence: KR)
  Receive Date: 20210630
  Receipt Date: 20210630
  Transmission Date: 20210717
  Serious: Yes (Hospitalization)
  Sender: FDA-Public Use
  Company Number: KR-ELI_LILLY_AND_COMPANY-KR202106013275

PATIENT
  Age: 56 Year
  Sex: Female

DRUGS (12)
  1. SYNTHYROXINE [Concomitant]
     Active Substance: LEVOTHYROXINE SODIUM
     Indication: PARATHYROIDECTOMY
     Dosage: UNK
     Dates: start: 200607
  2. HALOXIN [HYDROXYCHLOROQUINE SULFATE] [Concomitant]
     Active Substance: HYDROXYCHLOROQUINE SULFATE
     Indication: RHEUMATOID ARTHRITIS
     Dosage: UNK
     Dates: start: 20190806
  3. PARAMACET [Concomitant]
     Active Substance: ACETAMINOPHEN\TRAMADOL
     Indication: RHEUMATOID ARTHRITIS
     Dosage: UNK
     Dates: start: 20201201
  4. SOLONDO [Concomitant]
     Active Substance: PREDNISOLONE
     Indication: RHEUMATOID ARTHRITIS
     Dosage: UNK
     Dates: start: 20201201
  5. BANAN [Concomitant]
     Active Substance: CEFPODOXIME PROXETIL
     Indication: CELLULITIS
     Dosage: UNK
     Dates: start: 20200114, end: 20210202
  6. MEDICA CEFTRIAXONE [Concomitant]
     Indication: CELLULITIS
     Dosage: UNK
     Dates: start: 20210201, end: 20210201
  7. OLUMIANT [Suspect]
     Active Substance: BARICITINIB
     Indication: RHEUMATOID ARTHRITIS
     Dosage: 4 MG, DAILY
     Route: 065
     Dates: start: 20201103, end: 20210107
  8. CELEBREX [Concomitant]
     Active Substance: CELECOXIB
     Indication: RHEUMATOID ARTHRITIS
     Dosage: UNK
     Dates: start: 20201201
  9. CELEBREX [Concomitant]
     Active Substance: CELECOXIB
     Indication: CELLULITIS
  10. ROSUZET [Concomitant]
     Active Substance: EZETIMIBE\ROSUVASTATIN
     Indication: PROPHYLAXIS
     Dosage: UNK
     Dates: start: 20200414
  11. OLUMIANT [Suspect]
     Active Substance: BARICITINIB
     Dosage: 4 MG, DAILY
     Route: 065
     Dates: start: 20210215
  12. PANTOLOC [Concomitant]
     Active Substance: PANTOPRAZOLE SODIUM
     Indication: PROPHYLAXIS
     Dosage: UNK
     Dates: start: 20160523

REACTIONS (1)
  - Cellulitis [Recovered/Resolved]

NARRATIVE: CASE EVENT DATE: 20210203
